FAERS Safety Report 4501164-1 (Version None)
Quarter: 2004Q4

REPORT INFORMATION
  Report Type: 
  Country: None (occurrence: None)
  Receive Date: 20041109
  Receipt Date: 20041022
  Transmission Date: 20050328
  Serious: Yes (Hospitalization)
  Sender: FDA-Public Use
  Company Number: FR_040504146

PATIENT
  Age: 24 Year
  Sex: Female
  Weight: 60 kg

DRUGS (2)
  1. ZYPREXA [Suspect]
     Indication: PSYCHOTIC DISORDER
     Dosage: 10 MG DAY
     Dates: start: 20040501, end: 20040501
  2. ATARAX [Concomitant]

REACTIONS (4)
  - ANGIONEUROTIC OEDEMA [None]
  - INFECTION [None]
  - PYREXIA [None]
  - THROMBOTIC MICROANGIOPATHY [None]
